FAERS Safety Report 14539360 (Version 3)
Quarter: 2022Q3

REPORT INFORMATION
  Report Type: Report from Study
  Country: GB (occurrence: GB)
  Receive Date: 20180216
  Receipt Date: 20220901
  Transmission Date: 20221027
  Serious: Yes (Hospitalization, Other)
  Sender: FDA-Public Use
  Company Number: GB-EMA-DD-20171130-AJEVHP-091052

PATIENT
  Age: 77 Year
  Sex: Female
  Weight: 69.9 kg

DRUGS (33)
  1. DEXAMETHASONE [Suspect]
     Active Substance: DEXAMETHASONE
     Indication: Product used for unknown indication
     Dosage: 20 MG EVERY WEEK
     Route: 065
     Dates: start: 20170322, end: 20170412
  2. DEXAMETHASONE [Suspect]
     Active Substance: DEXAMETHASONE
     Dosage: EVERY WEEK
     Route: 065
     Dates: start: 20170405
  3. DEXAMETHASONE [Suspect]
     Active Substance: DEXAMETHASONE
     Dosage: EVERY WEEK
     Route: 065
     Dates: start: 20170614, end: 20170705
  4. DEXAMETHASONE [Suspect]
     Active Substance: DEXAMETHASONE
     Dosage: EVERY WEEK
     Route: 065
     Dates: start: 20170712, end: 20170802
  5. DEXAMETHASONE [Suspect]
     Active Substance: DEXAMETHASONE
     Dosage: EVERY WEEK
     Route: 065
     Dates: start: 20170809, end: 20170830
  6. DEXAMETHASONE [Suspect]
     Active Substance: DEXAMETHASONE
     Dosage: TREATMENT DURATION 28 DAYS, EVERY WEEK
     Route: 065
     Dates: start: 20170906, end: 20170927
  7. DEXAMETHASONE [Suspect]
     Active Substance: DEXAMETHASONE
     Dosage: EVERY WEEK, TREATMENT FOR 28 DAYS
     Route: 065
     Dates: start: 20171004, end: 20171011
  8. DEXAMETHASONE [Suspect]
     Active Substance: DEXAMETHASONE
     Dosage: EVERY WEEK
     Route: 065
     Dates: start: 20171019
  9. DEXAMETHASONE [Suspect]
     Active Substance: DEXAMETHASONE
     Dosage: EVERY WEEK
     Route: 065
     Dates: start: 20171101, end: 20171122
  10. DEXAMETHASONE [Suspect]
     Active Substance: DEXAMETHASONE
     Dosage: EVERY WEEK
     Route: 065
     Dates: start: 20170322, end: 20170411
  11. DEXAMETHASONE [Suspect]
     Active Substance: DEXAMETHASONE
     Dosage: EVERY WEEK
     Route: 065
     Dates: start: 20171122
  12. DEXAMETHASONE [Suspect]
     Active Substance: DEXAMETHASONE
     Dosage: EVERY WEEK
     Route: 065
     Dates: start: 20171115
  13. DEXAMETHASONE [Suspect]
     Active Substance: DEXAMETHASONE
     Dosage: EVERY WEEK
     Route: 065
     Dates: start: 20170830
  14. DEXAMETHASONE [Suspect]
     Active Substance: DEXAMETHASONE
     Dosage: EVERY WEEK
     Route: 065
     Dates: start: 20171108
  15. DEXAMETHASONE [Suspect]
     Active Substance: DEXAMETHASONE
     Dosage: EVERY WEEK: 20 MG QW
     Route: 065
     Dates: start: 20170802
  16. DEXAMETHASONE [Suspect]
     Active Substance: DEXAMETHASONE
     Dosage: EVERY WEEK: 20 MG QW
     Route: 065
     Dates: start: 20170712
  17. DEXAMETHASONE [Suspect]
     Active Substance: DEXAMETHASONE
     Dosage: EVERY WEEK: 20 MG QW
     Route: 065
     Dates: start: 20170906
  18. DEXAMETHASONE [Suspect]
     Active Substance: DEXAMETHASONE
     Dosage: EVERY WEEK: 20 MG QW
     Route: 065
     Dates: start: 20171101
  19. POMALIDOMIDE [Suspect]
     Active Substance: POMALIDOMIDE
     Indication: Plasma cell myeloma
     Dosage: 4 MILLIGRAM FOR 28 DAYS
     Route: 048
     Dates: start: 20170322, end: 20170411
  20. POMALIDOMIDE [Suspect]
     Active Substance: POMALIDOMIDE
     Route: 048
     Dates: start: 20171004, end: 20171016
  21. POMALIDOMIDE [Suspect]
     Active Substance: POMALIDOMIDE
     Dosage: 4 MILLIGRAM FOR 28 DAYS
     Route: 048
     Dates: start: 20171019
  22. POMALIDOMIDE [Suspect]
     Active Substance: POMALIDOMIDE
     Route: 048
  23. POMALIDOMIDE [Suspect]
     Active Substance: POMALIDOMIDE
     Route: 048
     Dates: start: 20170809, end: 20170829
  24. ACETAMINOPHEN [Concomitant]
     Active Substance: ACETAMINOPHEN
     Indication: Neck pain
     Route: 065
  25. AMLODIPINE [Concomitant]
     Active Substance: AMLODIPINE BESYLATE
     Indication: Hypertension
     Route: 065
  26. ERYTHROPOIETIN [Concomitant]
     Active Substance: ERYTHROPOIETIN
     Indication: Anaemia
     Dosage: 1 WEEK
     Route: 065
     Dates: start: 20170907
  27. ERYTHROPOIETIN [Concomitant]
     Active Substance: ERYTHROPOIETIN
     Indication: Fatigue
  28. ASPIRIN [Concomitant]
     Active Substance: ASPIRIN
     Indication: Product used for unknown indication
     Route: 065
  29. CLODRONIC ACID [Concomitant]
     Active Substance: CLODRONIC ACID
     Indication: Plasma cell myeloma
     Route: 065
  30. OMEPRAZOLE [Concomitant]
     Active Substance: OMEPRAZOLE
     Indication: Plasma cell myeloma
     Dosage: 1 WEEK
     Route: 065
     Dates: start: 20170322
  31. OMEPRAZOLE [Concomitant]
     Active Substance: OMEPRAZOLE
     Indication: Product used for unknown indication
  32. WHOLE BLOOD [Concomitant]
     Active Substance: WHOLE BLOOD
     Indication: Anaemia
     Route: 065
  33. WHOLE BLOOD [Concomitant]
     Active Substance: WHOLE BLOOD
     Indication: Fatigue

REACTIONS (11)
  - Leukopenia [Recovered/Resolved]
  - Leukopenia [Recovered/Resolved]
  - Lower respiratory tract infection [Recovered/Resolved]
  - Neutropenia [Recovered/Resolved]
  - Anaemia [Recovered/Resolved]
  - Fatigue [Recovered/Resolved]
  - Peripheral sensory neuropathy [Not Recovered/Not Resolved]
  - Fatigue [Recovered/Resolved]
  - Anaemia [Recovered/Resolved]
  - Anaemia [Recovering/Resolving]
  - Diarrhoea [Recovered/Resolved]

NARRATIVE: CASE EVENT DATE: 20170808
